FAERS Safety Report 8267918-3 (Version None)
Quarter: 2012Q2

REPORT INFORMATION
  Report Type: 
  Country: None (occurrence: None)
  Receive Date: 20120404
  Receipt Date: 20120328
  Transmission Date: 20120825
  Serious: Yes (Death, Hospitalization)
  Sender: FDA-Public Use
  Company Number: 2012080129

PATIENT
  Age: 49 Year
  Sex: Female

DRUGS (1)
  1. DALTEPARIN SODIUM [Suspect]
     Indication: LUNG NEOPLASM MALIGNANT
     Dates: start: 20111212

REACTIONS (4)
  - ANAEMIA [None]
  - HAEMOPTYSIS [None]
  - THROMBOCYTOPENIA [None]
  - MALAISE [None]
